FAERS Safety Report 8294132-8 (Version None)
Quarter: 2012Q2

REPORT INFORMATION
  Report Type: 
  Country: None (occurrence: None)
  Receive Date: 20120418
  Receipt Date: 20120410
  Transmission Date: 20120825
  Serious: Yes (Hospitalization, Other)
  Sender: FDA-Public Use
  Company Number: PHHO2012JP005486

PATIENT
  Sex: Male
  Weight: 64 kg

DRUGS (15)
  1. CRESTOR [Suspect]
     Dosage: 2.5 MG, UNK
     Route: 048
     Dates: start: 20090123
  2. AMARYL [Suspect]
     Dosage: 0.5 MG, QD
     Route: 048
     Dates: start: 20081107, end: 20120328
  3. AMARYL [Suspect]
     Dosage: 0.5 MG, QD
     Route: 048
     Dates: start: 20120402
  4. VOGLIBOSE [Suspect]
     Dosage: 0.6 MG, QD
     Route: 048
     Dates: start: 20090417, end: 20120329
  5. CALCIUM POLYSTYRENE SULFONATE [Suspect]
     Dosage: 10 G, QD
     Route: 048
     Dates: start: 20090122
  6. CALCIUM POLYSTYRENE SULFONATE [Suspect]
     Dosage: 10 G, QD
     Route: 048
     Dates: start: 20120403
  7. LANSOPRAZOLE [Concomitant]
     Dosage: 15 MG, UNK
     Route: 048
     Dates: start: 20120406
  8. KETOPROFEN [Concomitant]
     Dosage: TID
     Dates: start: 20090515
  9. VOGLIBOSE [Suspect]
     Dosage: 0.6 MG, QD
     Route: 048
     Dates: start: 20120402
  10. ATELEC [Suspect]
     Dosage: 20 MG, UNK
     Route: 048
     Dates: start: 20091010
  11. ALISKIREN [Suspect]
     Indication: CARDIOVASCULAR DISORDER
     Dosage: UNK
     Route: 048
     Dates: start: 20080926, end: 20111006
  12. LASIX [Suspect]
     Dosage: 20 MG, UNK
     Route: 048
     Dates: start: 20110404
  13. MS ONSHIPPU [Concomitant]
     Dosage: TD
     Dates: start: 20120106
  14. OLMESARTAN MEDOXOMIL [Suspect]
     Dosage: 40 MG, UNK
     Route: 048
     Dates: start: 20120204
  15. CARVEDILOL [Suspect]
     Dosage: 05 MG, UNK
     Dates: start: 20111107

REACTIONS (5)
  - RECTAL POLYP [None]
  - COLONIC POLYP [None]
  - COLON CANCER [None]
  - CHOLECYSTITIS [None]
  - COLON ADENOMA [None]
